FAERS Safety Report 5384750-9 (Version None)
Quarter: 2007Q3

REPORT INFORMATION
  Report Type: 
  Country: None (occurrence: None)
  Receive Date: 20070711
  Receipt Date: 20070629
  Transmission Date: 20080115
  Serious: Yes (Other)
  Sender: FDA-Public Use
  Company Number: US-PFIZER INC-2007054231

PATIENT
  Age: 55 Year
  Sex: Male
  Weight: 107 kg

DRUGS (8)
  1. CHANTIX [Suspect]
     Indication: EX-SMOKER
  2. CYCLOBENZAPRINE HCL [Concomitant]
  3. DI-GESIC [Concomitant]
  4. THEOPHYLLINE [Concomitant]
  5. TRAMADOL HCL [Concomitant]
  6. CELEBREX [Concomitant]
  7. AVAPRO [Concomitant]
  8. ACIPHEX [Concomitant]
     Indication: GASTROOESOPHAGEAL REFLUX DISEASE

REACTIONS (2)
  - ORAL MUCOSAL BLISTERING [None]
  - SWOLLEN TONGUE [None]
